FAERS Safety Report 21849447 (Version 1)
Quarter: 2023Q1

REPORT INFORMATION
  Report Type: Spontaneous
  Country: US (occurrence: None)
  Receive Date: 20230111
  Receipt Date: 20230111
  Transmission Date: 20230418
  Serious: Yes (Hospitalization)
  Sender: FDA-Public Use
  Company Number: None

PATIENT
  Age: 23 Year
  Sex: Female
  Weight: 41.85 kg

DRUGS (1)
  1. .DELTA.8-TETRAHYDROCANNABINOL\HERBALS [Suspect]
     Active Substance: .DELTA.8-TETRAHYDROCANNABINOL\HERBALS
     Indication: Eating disorder
     Dosage: OTHER QUANTITY : 1 GRAMS;?FREQUENCY : AS NEEDED;?
     Route: 048
     Dates: start: 20211107, end: 20230105

REACTIONS (5)
  - Near death experience [None]
  - Vomiting [None]
  - Sepsis [None]
  - Persistent depressive disorder [None]
  - Choking [None]

NARRATIVE: CASE EVENT DATE: 20230106
